FAERS Safety Report 20739600 (Version 2)
Quarter: 2022Q2

REPORT INFORMATION
  Report Type: Other
  Country: TR (occurrence: None)
  Receive Date: 20220422
  Receipt Date: 20220429
  Transmission Date: 20220721
  Serious: Yes (Other)
  Sender: FDA-Public Use
  Company Number: TR-Merck Healthcare KGaA-9313872

PATIENT
  Age: 65 Year
  Sex: Female

DRUGS (6)
  1. INTERFERON BETA-1A [Suspect]
     Active Substance: INTERFERON BETA-1A
     Indication: Relapsing-remitting multiple sclerosis
     Route: 058
     Dates: start: 201101
  2. INTERFERON BETA-1A [Suspect]
     Active Substance: INTERFERON BETA-1A
     Dosage: RESTARTED 3 MONTHS LATER
     Route: 058
  3. INTERFERON BETA-1A [Suspect]
     Active Substance: INTERFERON BETA-1A
     Dosage: BETWEEN 2011 TO 2015 THERAPY HAD TO BE PAUSED (FIRST TIME ON AN UNKNOWN DATE)
     Route: 058
  4. INTERFERON BETA-1A [Suspect]
     Active Substance: INTERFERON BETA-1A
     Dosage: BETWEEN 2011 TO 2015 THERAPY HAD TO BE PAUSED (SECOND TIME ON AN UNKNOWN DATE)
     Route: 058
  5. PAROXETINE [Concomitant]
     Active Substance: PAROXETINE
     Indication: Product used for unknown indication
     Dates: start: 2012
  6. PIRACETAM [Concomitant]
     Active Substance: PIRACETAM
     Indication: Product used for unknown indication
     Dates: start: 2012

REACTIONS (2)
  - Lymphopenia [Unknown]
  - Lymph node tuberculosis [Recovered/Resolved]

NARRATIVE: CASE EVENT DATE: 20110201
